FAERS Safety Report 6235501-7 (Version None)
Quarter: 2009Q2

REPORT INFORMATION
  Report Type: 
  Country: None (occurrence: None)
  Receive Date: 20090618
  Receipt Date: 20080610
  Transmission Date: 20091009
  Serious: No
  Sender: FDA-Public Use
  Company Number: US-ASTRAZENECA-2008UW11603

PATIENT
  Sex: Male

DRUGS (2)
  1. RHINOCORT [Suspect]
     Indication: HYPERSENSITIVITY
     Route: 045
  2. RHINOCORT [Suspect]
     Indication: HEADACHE
     Route: 045

REACTIONS (2)
  - HEADACHE [None]
  - NASAL CONGESTION [None]
